FAERS Safety Report 6601474-8 (Version None)
Quarter: 2010Q1

REPORT INFORMATION
  Report Type: 
  Country: None (occurrence: None)
  Receive Date: 20100225
  Receipt Date: 20100111
  Transmission Date: 20100710
  Serious: No
  Sender: FDA-Public Use
  Company Number: US-KINGPHARMUSA00001-K201000054

PATIENT
  Sex: Female
  Weight: 73.469 kg

DRUGS (2)
  1. FLECTOR [Suspect]
     Indication: PAIN
     Dosage: 1 PATCH, SINGLE
     Route: 061
     Dates: start: 20100108, end: 20100109
  2. ACETAMINOPHEN [Concomitant]
     Indication: PAIN
     Dosage: 500 MG, PRN

REACTIONS (12)
  - APPLICATION SITE COLD FEELING [None]
  - APPLICATION SITE DISCOLOURATION [None]
  - APPLICATION SITE PAIN [None]
  - APPLICATION SITE PRURITUS [None]
  - APPLICATION SITE RASH [None]
  - APPLICATION SITE SWELLING [None]
  - APPLICATION SITE VESICLES [None]
  - APPLICATION SITE WARMTH [None]
  - DERMATITIS CONTACT [None]
  - DRUG EXPOSURE VIA BREAST MILK [None]
  - PAIN [None]
  - WOUND [None]
